FAERS Safety Report 6230722-1 (Version None)
Quarter: 2009Q2

REPORT INFORMATION
  Report Type: 
  Country: None (occurrence: None)
  Receive Date: 20090611
  Receipt Date: 20090529
  Transmission Date: 20091009
  Serious: Yes (Other)
  Sender: FDA-Public Use
  Company Number: IDA-00211

PATIENT
  Age: 31 Year
  Sex: Female

DRUGS (2)
  1. PROPRANOLOL [Suspect]
     Indication: HYPERTHYROIDISM
     Dosage: 10 MG Q6H ORAL FORMULATION: TABLET
     Route: 048
  2. METIMAZOL (THIAMZOLE) [Concomitant]

REACTIONS (4)
  - CONDITION AGGRAVATED [None]
  - HYPERTHYROIDISM [None]
  - THYROID CANCER [None]
  - TOXIC NODULAR GOITRE [None]
